FAERS Safety Report 21498085 (Version 1)
Quarter: 2022Q4

REPORT INFORMATION
  Report Type: Spontaneous
  Country: CN (occurrence: CN)
  Receive Date: 20221024
  Receipt Date: 20221024
  Transmission Date: 20230113
  Serious: Yes (Other)
  Sender: FDA-Public Use
  Company Number: None

PATIENT
  Age: 66 Year
  Sex: Female
  Weight: 52 kg

DRUGS (7)
  1. CYCLOPHOSPHAMIDE [Suspect]
     Active Substance: CYCLOPHOSPHAMIDE
     Indication: Chemotherapy
     Dosage: 800 MG, ONCE DAILY, USED TO DILUTE SODIUM CHLORIDE 40 ML, SECOND CHEMOTHERAPY
     Route: 042
     Dates: start: 20220712, end: 20220712
  2. CYCLOPHOSPHAMIDE [Suspect]
     Active Substance: CYCLOPHOSPHAMIDE
     Indication: Breast cancer female
  3. SODIUM CHLORIDE [Suspect]
     Active Substance: SODIUM CHLORIDE
     Indication: Medication dilution
     Dosage: 40 ML, ONCE DAILY, USED TO DILUTE CYCLOPHOSPHAMIDE 800 MG, SECOND CHEMOTHERAPY
     Route: 042
     Dates: start: 20220712, end: 20220712
  4. SODIUM CHLORIDE [Suspect]
     Active Substance: SODIUM CHLORIDE
     Dosage: 100 ML, ONCE DAILY, USED TO DILUTE EPIRUBICIN 130 MG, SECOND CHEMOTHERAPY
     Route: 041
     Dates: start: 20220712, end: 20220712
  5. EPIRUBICIN [Suspect]
     Active Substance: EPIRUBICIN
     Indication: Chemotherapy
     Dosage: 130 MG, ONCE DAILY, USED TO DILUTE WITH SODIUM CHLORIDE 100 ML, SECOND CHEMOTHERAPY
     Route: 041
     Dates: start: 20220712, end: 20220712
  6. EPIRUBICIN [Suspect]
     Active Substance: EPIRUBICIN
     Indication: Breast cancer female
  7. AI DUO [Concomitant]
     Indication: Product used for unknown indication
     Dosage: 6 MG,
     Route: 058
     Dates: start: 202207

REACTIONS (2)
  - White blood cell count decreased [Recovered/Resolved]
  - Agranulocytosis [Recovered/Resolved]

NARRATIVE: CASE EVENT DATE: 20220720
